FAERS Safety Report 24731190 (Version 1)
Quarter: 2024Q4

REPORT INFORMATION
  Report Type: Spontaneous
  Country: US (occurrence: None)
  Receive Date: 20241212
  Receipt Date: 20241212
  Transmission Date: 20250115
  Serious: Yes (Hospitalization)
  Sender: Public
  Company Number: None

PATIENT
  Sex: Female
  Weight: 82.1 kg

DRUGS (8)
  1. WINREVAIR [Suspect]
     Active Substance: SOTATERCEPT-CSRK
     Indication: Pulmonary arterial hypertension
     Dosage: FREQUENCY : EVERY THREE WEEKS;?
     Route: 058
     Dates: start: 202406
  2. OPSUMIT [Suspect]
     Active Substance: MACITENTAN
     Dosage: FREQUENCY : DAILY;?
  3. FLOLAN STERILE DILUENT [Concomitant]
  4. DEVICE [Concomitant]
     Active Substance: DEVICE
  5. MIRENA IUD SYS [Concomitant]
  6. TREPROSTINIL [Concomitant]
     Active Substance: TREPROSTINIL
  7. SILDENAFIL CITRATE [Concomitant]
     Active Substance: SILDENAFIL CITRATE
  8. OPSUMIT [Concomitant]
     Active Substance: MACITENTAN

REACTIONS (10)
  - Catheter site haemorrhage [None]
  - Peripheral swelling [None]
  - Pain in extremity [None]
  - Nausea [None]
  - Diarrhoea [None]
  - Chest pain [None]
  - Oxygen saturation decreased [None]
  - Skin infection [None]
  - Complication associated with device [None]
  - Atrial septal defect [None]
